FAERS Safety Report 5407022-2 (Version None)
Quarter: 2007Q3

REPORT INFORMATION
  Report Type: 
  Country: None (occurrence: None)
  Receive Date: 20070803
  Receipt Date: 20070718
  Transmission Date: 20080115
  Serious: Yes (Other)
  Sender: FDA-Public Use
  Company Number: 159029ISR

PATIENT
  Age: 88 Year
  Sex: 0

DRUGS (3)
  1. CLARITHROMYCIN [Suspect]
     Dosage: 500 MG
  2. LANSOPRAZOLE [Suspect]
     Dosage: 30 MG
  3. AMOXICILLIN [Suspect]
     Dosage: 500 MG

REACTIONS (2)
  - IMMUNE SYSTEM DISORDER [None]
  - WEIGHT DECREASED [None]
